FAERS Safety Report 8924324 (Version 1)
Quarter: 2012Q4

REPORT INFORMATION
  Report Type: Report from Study
  Country: RO (occurrence: RO)
  Receive Date: 20121126
  Receipt Date: 20121126
  Transmission Date: 20130627
  Serious: Yes (Hospitalization)
  Sender: FDA-Public Use
  Company Number: RO-GLAXOSMITHKLINE-B0846274A

PATIENT
  Age: 80 Year
  Sex: Male

DRUGS (1)
  1. DUODART [Suspect]
     Indication: ADENOMA BENIGN
     Route: 065

REACTIONS (2)
  - Bladder dysfunction [Unknown]
  - Malaise [Unknown]
